FAERS Safety Report 8465279-8 (Version None)
Quarter: 2012Q2

REPORT INFORMATION
  Report Type: 
  Country: None (occurrence: None)
  Receive Date: 20120626
  Receipt Date: 20120612
  Transmission Date: 20120825
  Serious: Yes (Other)
  Sender: FDA-Public Use
  Company Number: JP-TEVA-344649ISR

PATIENT
  Age: 69 Year
  Sex: Female

DRUGS (2)
  1. CISPLATIN [Suspect]
     Indication: BLADDER CANCER
  2. GEMCITABINE [Concomitant]

REACTIONS (1)
  - RENAL SALT-WASTING SYNDROME [None]
